FAERS Safety Report 20218716 (Version 2)
Quarter: 2022Q1

REPORT INFORMATION
  Report Type: Report from Study
  Country: DE (occurrence: DE)
  Receive Date: 20211222
  Receipt Date: 20220209
  Transmission Date: 20220424
  Serious: Yes (Hospitalization, Other)
  Sender: FDA-Public Use
  Company Number: DE-NOVARTISPH-NVSC2021DE291042

PATIENT
  Sex: Female
  Weight: 60 kg

DRUGS (19)
  1. COSENTYX [Suspect]
     Active Substance: SECUKINUMAB
     Indication: Psoriatic arthropathy
     Dosage: 150 MG, ONCE/SINGLE
     Route: 065
     Dates: start: 20210601, end: 20210601
  2. COSENTYX [Suspect]
     Active Substance: SECUKINUMAB
     Dosage: 150 MG, ONCE/SINGLE
     Route: 065
     Dates: start: 20210608, end: 20210608
  3. COSENTYX [Suspect]
     Active Substance: SECUKINUMAB
     Dosage: 150 MG, ONCE/SINGLE
     Route: 065
     Dates: start: 20210615, end: 20210615
  4. COSENTYX [Suspect]
     Active Substance: SECUKINUMAB
     Dosage: 150 MG, ONCE/SINGLE
     Route: 065
     Dates: start: 20210622, end: 20210622
  5. COSENTYX [Suspect]
     Active Substance: SECUKINUMAB
     Dosage: 150 MG, ONCE/SINGLE
     Route: 065
     Dates: start: 20210629, end: 20210629
  6. COSENTYX [Suspect]
     Active Substance: SECUKINUMAB
     Dosage: 150 MG, ONCE/SINGLE
     Route: 065
     Dates: start: 20210727, end: 20210727
  7. COSENTYX [Suspect]
     Active Substance: SECUKINUMAB
     Dosage: 150 MG, ONCE/SINGLE
     Route: 065
     Dates: start: 20210824, end: 20210824
  8. COSENTYX [Suspect]
     Active Substance: SECUKINUMAB
     Dosage: 150 MG, ONCE/SINGLE
     Route: 065
     Dates: start: 20210921, end: 20210921
  9. COSENTYX [Suspect]
     Active Substance: SECUKINUMAB
     Dosage: 150 MG, ONCE/SINGLE
     Route: 065
     Dates: start: 20211019, end: 20211019
  10. COSENTYX [Suspect]
     Active Substance: SECUKINUMAB
     Dosage: 150 MG, ONCE/SINGLE
     Route: 065
     Dates: start: 20211116, end: 20211116
  11. METAMIZOLE [Concomitant]
     Active Substance: METAMIZOLE
     Indication: Psoriatic arthropathy
     Dosage: 500 MG, PRN
     Route: 048
     Dates: start: 201511
  12. METAMIZOLE [Concomitant]
     Active Substance: METAMIZOLE
     Indication: Pain
  13. METOPROLOL [Concomitant]
     Active Substance: METOPROLOL
     Indication: Hypertension
     Dosage: UNK
     Route: 048
  14. PANTOPRAZOLE [Concomitant]
     Active Substance: PANTOPRAZOLE
     Indication: Abdominal discomfort
     Dosage: 20 MG, QD
     Route: 048
  15. DOXEPIN [Concomitant]
     Active Substance: DOXEPIN
     Indication: Depression
     Dosage: 10 MG, QD
     Route: 048
  16. PROMETHAZINE [Concomitant]
     Active Substance: PROMETHAZINE HYDROCHLORIDE
     Indication: Depression
     Dosage: 100 MG, QD
     Route: 048
  17. RAMIPRIL [Concomitant]
     Active Substance: RAMIPRIL
     Indication: Hypertension
     Dosage: 2.5 MG, QD
     Route: 048
  18. TILIDINE [Concomitant]
     Active Substance: TILIDINE
     Indication: Pain
     Dosage: 1 DOSAGE FORM (100/8 MG), QD
     Route: 048
  19. NALOXONE [Concomitant]
     Active Substance: NALOXONE
     Indication: Pain
     Dosage: 1 DOSAGE FORM (100/8 MG), QD
     Route: 048

REACTIONS (1)
  - Pyelonephritis [Recovered/Resolved]

NARRATIVE: CASE EVENT DATE: 20210605
